FAERS Safety Report 8084524-4 (Version None)
Quarter: 2012Q1

REPORT INFORMATION
  Report Type: 
  Country: None (occurrence: None)
  Receive Date: 20120128
  Receipt Date: 20110331
  Transmission Date: 20120608
  Serious: No
  Sender: FDA-Public Use
  Company Number: US-ABBOTT-11P-163-0716428-00

PATIENT
  Sex: Female
  Weight: 59.474 kg

DRUGS (4)
  1. IMURAN [Concomitant]
     Indication: RHEUMATOID ARTHRITIS
  2. VOLTAREN [Concomitant]
     Indication: PAIN
  3. HUMIRA [Suspect]
     Indication: RHEUMATOID ARTHRITIS
     Dates: start: 20090101
  4. UNKNOWN BLOOD PRESSURE MED [Concomitant]
     Indication: HYPERTENSION

REACTIONS (4)
  - OROPHARYNGEAL PAIN [None]
  - SINUS HEADACHE [None]
  - HEADACHE [None]
  - COUGH [None]
